FAERS Safety Report 24071839 (Version 1)
Quarter: 2024Q3

REPORT INFORMATION
  Report Type: Report from Study
  Country: BR (occurrence: BR)
  Receive Date: 20240710
  Receipt Date: 20240710
  Transmission Date: 20241017
  Serious: No
  Sender: ROCHE
  Company Number: BR-ROCHE-3428459

PATIENT
  Age: 32 Year
  Sex: Female
  Weight: 22.2 kg

DRUGS (1)
  1. EVRYSDI [Suspect]
     Active Substance: RISDIPLAM
     Indication: Spinal muscular atrophy
     Dosage: 5 MG / 6.6 ML
     Route: 065

REACTIONS (3)
  - Weight decreased [Recovered/Resolved]
  - Weight increased [Unknown]
  - Weight decreased [Unknown]
